FAERS Safety Report 6584332-7 (Version None)
Quarter: 2010Q1

REPORT INFORMATION
  Report Type: 
  Country: None (occurrence: None)
  Receive Date: 20100216
  Receipt Date: 20100202
  Transmission Date: 20100710
  Serious: No
  Sender: FDA-Public Use
  Company Number: US-ABBOTT-10P-163-0623774-00

PATIENT
  Sex: Male

DRUGS (2)
  1. SIMCOR [Suspect]
     Indication: BLOOD CHOLESTEROL INCREASED
  2. COUMADIN [Concomitant]
     Indication: DRUG USE FOR UNKNOWN INDICATION

REACTIONS (2)
  - ERYTHEMA [None]
  - INJECTION SITE PAIN [None]
